FAERS Safety Report 18066276 (Version 2)
Quarter: 2020Q3

REPORT INFORMATION
  Report Type: Report from Study
  Country: IT (occurrence: IT)
  Receive Date: 20200724
  Receipt Date: 20200803
  Transmission Date: 20201103
  Serious: Yes (Life-Threatening, Hospitalization)
  Sender: FDA-Public Use
  Company Number: IT-BRISTOL-MYERS SQUIBB COMPANY-BMS-2020-057647

PATIENT
  Age: 79 Year
  Sex: Male

DRUGS (12)
  1. POTASSIUM CANRENOATE [Concomitant]
     Active Substance: CANRENOATE POTASSIUM
     Indication: DYSPNOEA
  2. TEMOZOLOMIDE. [Suspect]
     Active Substance: TEMOZOLOMIDE
     Indication: COLORECTAL CANCER METASTATIC
     Dosage: 75 MG/MQ
     Route: 048
     Dates: start: 20200327
  3. NIVOLUMAB [Suspect]
     Active Substance: NIVOLUMAB
     Indication: COLORECTAL CANCER METASTATIC
     Dosage: 480 MILLIGRAM
     Route: 065
     Dates: start: 20200327, end: 20200619
  4. FUROSEMIDE. [Concomitant]
     Active Substance: FUROSEMIDE
     Indication: OEDEMA PERIPHERAL
  5. IPILIMUMAB [Suspect]
     Active Substance: IPILIMUMAB
     Indication: COLORECTAL CANCER METASTATIC
     Dosage: 55 MILLIGRAM
     Route: 065
     Dates: start: 20200327, end: 20200619
  6. POTASSIUM CANRENOATE [Concomitant]
     Active Substance: CANRENOATE POTASSIUM
     Indication: OEDEMA PERIPHERAL
  7. BISOPROLOL [Concomitant]
     Active Substance: BISOPROLOL
     Indication: FATIGUE
     Dosage: 2.5 MILLIGRAM, QD
     Route: 065
     Dates: start: 202006
  8. BISOPROLOL [Concomitant]
     Active Substance: BISOPROLOL
     Indication: OEDEMA PERIPHERAL
  9. FUROSEMIDE. [Concomitant]
     Active Substance: FUROSEMIDE
     Indication: FATIGUE
     Dosage: 25 MILLIGRAM, QD
     Route: 065
     Dates: start: 202006
  10. FUROSEMIDE. [Concomitant]
     Active Substance: FUROSEMIDE
     Indication: DYSPNOEA
  11. POTASSIUM CANRENOATE [Concomitant]
     Active Substance: CANRENOATE POTASSIUM
     Indication: FATIGUE
     Dosage: 100 MILLIGRAM, QD
     Route: 065
     Dates: start: 202006
  12. BISOPROLOL [Concomitant]
     Active Substance: BISOPROLOL
     Indication: DYSPNOEA

REACTIONS (2)
  - Diastolic dysfunction [Unknown]
  - Ventricular dysfunction [Unknown]

NARRATIVE: CASE EVENT DATE: 20200716
